FAERS Safety Report 4485149-X (Version None)
Quarter: 2004Q4

REPORT INFORMATION
  Report Type: 
  Country: None (occurrence: None)
  Receive Date: 20041026
  Receipt Date: 20031219
  Transmission Date: 20050328
  Serious: No
  Sender: FDA-Public Use
  Company Number: US-BRISTOL-MYERS SQUIBB COMPANY-12462750

PATIENT
  Age: 51 Year
  Sex: Female
  Weight: 48 kg

DRUGS (3)
  1. GLUCOPHAGE XR [Suspect]
     Indication: DIABETES MELLITUS
     Route: 048
     Dates: start: 20020318
  2. BENADRYL [Concomitant]
     Indication: INSOMNIA
  3. ASPIRIN [Concomitant]
     Indication: PROPHYLAXIS

REACTIONS (1)
  - HAIR TEXTURE ABNORMAL [None]
